FAERS Safety Report 9131267 (Version 1)
Quarter: 2013Q1

REPORT INFORMATION
  Report Type: Report from Study
  Country: JP (occurrence: JP)
  Receive Date: 20130301
  Receipt Date: 20130301
  Transmission Date: 20140127
  Serious: Yes (Disabling)
  Sender: FDA-Public Use
  Company Number: JP-PFIZER INC-2013060456

PATIENT
  Age: 74 Year
  Sex: Male
  Weight: 51.4 kg

DRUGS (15)
  1. EPLERENONE [Suspect]
     Indication: CARDIAC FAILURE CHRONIC
     Dosage: 1X/DAY
     Route: 048
     Dates: start: 20110712
  2. LASIX [Suspect]
     Indication: CARDIAC FAILURE CHRONIC
     Dosage: 40 MG, 2X/DAY
     Route: 048
     Dates: start: 20121228
  3. VOGLIBOSE [Concomitant]
     Indication: DIABETES MELLITUS
     Dosage: 0.3 MG, 3X/DAY
     Route: 048
     Dates: start: 20111230
  4. ARTIST [Concomitant]
     Indication: CARDIAC FAILURE CHRONIC
     Dosage: 10 MG, 1X/DAY
     Route: 048
     Dates: start: 20110413
  5. AMIODARONE HYDROCHLORIDE [Concomitant]
     Indication: ATRIAL FIBRILLATION
     Dosage: 100 MG, 2X/DAY
     Route: 048
     Dates: start: 20111222
  6. LIPITOR [Concomitant]
     Indication: HYPERLIPIDAEMIA
     Dosage: 10 MG, 1X/DAY
     Route: 048
     Dates: start: 20110413
  7. PLAVIX [Concomitant]
     Indication: THROMBOSIS PROPHYLAXIS
     Dosage: 75 MG, 1X/DAY
     Route: 048
     Dates: start: 20120214
  8. BAYASPIRIN [Concomitant]
     Indication: THROMBOSIS PROPHYLAXIS
     Dosage: 100 MG, 1X/DAY
     Route: 048
     Dates: start: 20110413
  9. PARIET [Concomitant]
     Indication: GASTROOESOPHAGEAL REFLUX DISEASE
     Dosage: 10 MG, 1X/DAY
     Route: 048
     Dates: start: 20110413
  10. NITRODERM [Concomitant]
     Indication: ANGINA PECTORIS
     Dosage: 24 MG, AS NEEDED
     Route: 062
     Dates: start: 20120311
  11. MAG-LAX [Concomitant]
     Indication: CONSTIPATION
     Dosage: 500 TO 1000MG AT A TIME
     Route: 048
     Dates: start: 20120126
  12. AMARYL [Concomitant]
     Indication: DIABETES MELLITUS
     Dosage: 3 MG, 1X/DAY
     Route: 048
     Dates: start: 20130202
  13. NESINA [Concomitant]
     Indication: DIABETES MELLITUS
     Dosage: 12.5 MG, 1X/DAY
     Route: 048
     Dates: start: 20121229
  14. PRAZAXA [Concomitant]
     Indication: THROMBOSIS PROPHYLAXIS
     Dosage: 110 MG, 2X/DAY
     Route: 048
     Dates: start: 20120412
  15. ARGAMATE [Concomitant]
     Indication: HYPERKALAEMIA
     Dosage: 50 G, 2X/DAY
     Route: 048
     Dates: start: 20130201

REACTIONS (1)
  - Cerebral infarction [Not Recovered/Not Resolved]
